FAERS Safety Report 7570524-7 (Version None)
Quarter: 2011Q2

REPORT INFORMATION
  Report Type: 
  Country: None (occurrence: None)
  Receive Date: 20110624
  Receipt Date: 20110325
  Transmission Date: 20111010
  Serious: No
  Sender: FDA-Public Use
  Company Number: US-ALLERGAN-1104283US

PATIENT
  Age: 36 Year
  Sex: Female

DRUGS (1)
  1. LATISSE [Suspect]
     Indication: TRICHORRHEXIS
     Dosage: 1 GTT, QHS

REACTIONS (4)
  - TRICHORRHEXIS [None]
  - ERYTHEMA [None]
  - EYELIDS PRURITUS [None]
  - EYELID IRRITATION [None]
